FAERS Safety Report 23073242 (Version 2)
Quarter: 2023Q4

REPORT INFORMATION
  Report Type: Report from Study
  Country: US (occurrence: US)
  Receive Date: 20231017
  Receipt Date: 20231116
  Transmission Date: 20240109
  Serious: Yes (Other)
  Sender: FDA-Public Use
  Company Number: US-UCBSA-2023049440

PATIENT
  Age: 21 Year
  Sex: Male

DRUGS (2)
  1. BRIVARACETAM [Suspect]
     Active Substance: BRIVARACETAM
     Indication: Seizure
     Dosage: 100MG 2 TIMES PER DAY
  2. LACOSAMIDE [Concomitant]
     Active Substance: LACOSAMIDE
     Indication: Product used for unknown indication
     Dosage: 200MG 2 TIMES PER DAY

REACTIONS (2)
  - Seizure [Not Recovered/Not Resolved]
  - Aura [Not Recovered/Not Resolved]

NARRATIVE: CASE EVENT DATE: 20230901
